FAERS Safety Report 7831665-X (Version None)
Quarter: 2011Q4

REPORT INFORMATION
  Report Type: 
  Country: None (occurrence: None)
  Receive Date: 20111019
  Receipt Date: 20111007
  Transmission Date: 20120403
  Serious: Yes (Other)
  Sender: FDA-Public Use
  Company Number: DSJ-2011-21859

PATIENT
  Age: 68 Year
  Sex: Female

DRUGS (2)
  1. BENICAR [Suspect]
     Indication: HYPERTENSION
     Dosage: 40 (40 MG, 1 IN 1 D), PER ORAL; 20 MG (40 MG, 1 IN 2 D), PER ORAL
     Route: 048
     Dates: start: 20110101
  2. BENICAR [Suspect]
     Indication: HYPERTENSION
     Dosage: 40 (40 MG, 1 IN 1 D), PER ORAL; 20 MG (40 MG, 1 IN 2 D), PER ORAL
     Route: 048
     Dates: start: 20100101, end: 20110101

REACTIONS (2)
  - HYPOTENSION [None]
  - DRUG ADMINISTRATION ERROR [None]
